FAERS Safety Report 24757577 (Version 2)
Quarter: 2024Q4

REPORT INFORMATION
  Report Type: Spontaneous
  Country: US (occurrence: US)
  Receive Date: 20241220
  Receipt Date: 20241226
  Transmission Date: 20250115
  Serious: Yes (Other)
  Sender: ASTELLAS
  Company Number: US-ASTELLAS-2024-AER-024352

PATIENT
  Age: 73 Year
  Sex: Female

DRUGS (3)
  1. GILTERITINIB [Suspect]
     Active Substance: GILTERITINIB
     Indication: Acute myeloid leukaemia refractory
     Route: 065
  2. GILTERITINIB [Suspect]
     Active Substance: GILTERITINIB
     Route: 065
  3. IADADEMSTAT [Concomitant]
     Active Substance: IADADEMSTAT
     Indication: Acute myeloid leukaemia refractory
     Route: 065

REACTIONS (7)
  - Neutropenia [Recovered/Resolved]
  - Hyperbilirubinaemia [Unknown]
  - Hypokalaemia [Unknown]
  - Acute febrile neutrophilic dermatosis [Recovered/Resolved]
  - Disease recurrence [Recovered/Resolved]
  - Product use issue [Unknown]
  - Off label use [Unknown]
